FAERS Safety Report 11123990 (Version 1)
Quarter: 2015Q2

REPORT INFORMATION
  Report Type: Spontaneous
  Country: US (occurrence: US)
  Receive Date: 20150520
  Receipt Date: 20150520
  Transmission Date: 20150821
  Serious: No
  Sender: FDA-Public Use
  Company Number: US-ASTRAZENECA-2015SE42510

PATIENT
  Age: 68 Year
  Sex: Male
  Weight: 107.5 kg

DRUGS (6)
  1. SYMBICORT [Suspect]
     Active Substance: BUDESONIDE\FORMOTEROL FUMARATE DIHYDRATE
     Indication: RESPIRATORY TRACT IRRITATION
     Dosage: 2 PUFFS, TWO TIMES A DAY
     Route: 055
     Dates: start: 201502
  2. PULMICORT FLEXHALER [Suspect]
     Active Substance: BUDESONIDE
     Indication: BURNING SENSATION
     Dosage: 180 MCG, 2 PUFFS, TWO TIMES A DAY
     Route: 055
     Dates: start: 201503
  3. SYMBICORT [Suspect]
     Active Substance: BUDESONIDE\FORMOTEROL FUMARATE DIHYDRATE
     Indication: SWELLING
     Dosage: 2 PUFFS, TWO TIMES A DAY
     Route: 055
     Dates: start: 201502
  4. SYMBICORT [Suspect]
     Active Substance: BUDESONIDE\FORMOTEROL FUMARATE DIHYDRATE
     Indication: BURNING SENSATION
     Dosage: 2 PUFFS, TWO TIMES A DAY
     Route: 055
     Dates: start: 201502
  5. PULMICORT FLEXHALER [Suspect]
     Active Substance: BUDESONIDE
     Indication: RESPIRATORY TRACT IRRITATION
     Dosage: 180 MCG, 2 PUFFS, TWO TIMES A DAY
     Route: 055
     Dates: start: 201503
  6. PULMICORT FLEXHALER [Suspect]
     Active Substance: BUDESONIDE
     Indication: SWELLING
     Dosage: 180 MCG, 2 PUFFS, TWO TIMES A DAY
     Route: 055
     Dates: start: 201503

REACTIONS (3)
  - Respiratory tract irritation [Unknown]
  - Drug dose omission [Unknown]
  - Off label use [Unknown]

NARRATIVE: CASE EVENT DATE: 2015
